FAERS Safety Report 18981962 (Version 3)
Quarter: 2021Q1

REPORT INFORMATION
  Report Type: Spontaneous
  Country: US (occurrence: US)
  Receive Date: 20210308
  Receipt Date: 20210311
  Transmission Date: 20210420
  Serious: No
  Sender: FDA-Public Use
  Company Number: US-PFIZER INC-2021159469

PATIENT
  Age: 59 Year
  Sex: Female

DRUGS (1)
  1. XELJANZ XR [Suspect]
     Active Substance: TOFACITINIB CITRATE
     Indication: RHEUMATOID ARTHRITIS
     Dosage: 11 MG, DAILY
     Dates: start: 202011, end: 202101

REACTIONS (10)
  - Muscle tightness [Unknown]
  - Fear [Unknown]
  - Migraine [Unknown]
  - Fatigue [Unknown]
  - Disease recurrence [Unknown]
  - Headache [Unknown]
  - Somnolence [Unknown]
  - Ear discomfort [Unknown]
  - Vertigo [Unknown]
  - Weight increased [Unknown]
